FAERS Safety Report 16861866 (Version 3)
Quarter: 2021Q3

REPORT INFORMATION
  Report Type: Spontaneous
  Country: SA (occurrence: SA)
  Receive Date: 20190927
  Receipt Date: 20210909
  Transmission Date: 20211014
  Serious: Yes (Hospitalization, Other)
  Sender: FDA-Public Use
  Company Number: SA-ACCORD-155667

PATIENT
  Age: 65 Year
  Sex: Female

DRUGS (3)
  1. FOLINIC ACID [Suspect]
     Active Substance: LEUCOVORIN
     Indication: RECTAL ADENOCARCINOMA
     Dosage: FOLLOWED BY 46 HOURS OF 5? FU INFUSION
  2. FLUOROURACIL. [Suspect]
     Active Substance: FLUOROURACIL
     Indication: RECTAL ADENOCARCINOMA
     Dosage: ON DAY 1 OF TREATMENT, REDUCED BY 50%, INCREASED BY 5% IN SUBSEQUENT CYCLE, 46 H OF 5?FU INFUSION
     Route: 042
  3. OXALIPLATIN. [Suspect]
     Active Substance: OXALIPLATIN
     Indication: RECTAL ADENOCARCINOMA

REACTIONS (9)
  - Sepsis [Recovering/Resolving]
  - Diarrhoea [Recovering/Resolving]
  - Neuropathy peripheral [Unknown]
  - Dehydration [Recovering/Resolving]
  - Pyrexia [Recovering/Resolving]
  - Mucosal inflammation [Recovering/Resolving]
  - Alopecia [Recovering/Resolving]
  - Phlebitis [Recovering/Resolving]
  - Pancytopenia [Recovering/Resolving]
